FAERS Safety Report 4408480-2 (Version None)
Quarter: 2004Q3

REPORT INFORMATION
  Report Type: 
  Country: None (occurrence: None)
  Receive Date: 20040723
  Receipt Date: 20040709
  Transmission Date: 20050211
  Serious: Yes (Hospitalization)
  Sender: FDA-Public Use
  Company Number: 2004-BP-05865AI

PATIENT
  Age: 81 Year
  Sex: Female

DRUGS (8)
  1. MOBIC [Suspect]
     Indication: BACK PAIN
     Dosage: 10 MG (10MG, 1 IN 1 D); PO
     Route: 048
     Dates: end: 20040611
  2. CANDESARTAN CILEXETIL [Suspect]
     Indication: HYPERTENSION
     Dosage: 4 MG (4MG); PO
     Route: 048
     Dates: start: 20040602, end: 20040611
  3. IFENPRODIL TARTRATE (NR) [Concomitant]
     Indication: DIZZINESS
     Dosage: 30 MG (30 MG, 1 IN 1 D); PO
     Route: 048
     Dates: end: 20040611
  4. EPERISONE HYDROCHLORIDE [Suspect]
     Indication: BACK PAIN
     Dosage: 150 MG (150 MG, 1 IN 1 D); PO
     Route: 048
     Dates: end: 20040611
  5. BETAHISTINE HYDROCHLORIDE [Suspect]
     Indication: DIZZINESS
     Dosage: 18 MG (18 MG, 1 IN 1 D); PO
     Route: 048
     Dates: end: 20040611
  6. NIFEDIPINE [Suspect]
     Indication: HYPERTENSION
     Dosage: 40 MG (40 MG); PO
     Route: 048
     Dates: end: 20040611
  7. MANIDIPINE HYDROCHLORIDE [Concomitant]
  8. LISINOPRIL [Concomitant]

REACTIONS (7)
  - ALANINE AMINOTRANSFERASE INCREASED [None]
  - ASPARTATE AMINOTRANSFERASE INCREASED [None]
  - BLOOD ALKALINE PHOSPHATASE INCREASED [None]
  - BLOOD LACTATE DEHYDROGENASE INCREASED [None]
  - GAMMA-GLUTAMYLTRANSFERASE INCREASED [None]
  - HYPERTENSION [None]
  - LIVER DISORDER [None]
